FAERS Safety Report 6982959-1 (Version None)
Quarter: 2010Q3

REPORT INFORMATION
  Report Type: 
  Country: None (occurrence: None)
  Receive Date: 20100914
  Receipt Date: 20100524
  Transmission Date: 20110219
  Serious: No
  Sender: FDA-Public Use
  Company Number: US-PFIZER INC-2010065982

PATIENT
  Sex: Female
  Weight: 54 kg

DRUGS (10)
  1. LYRICA [Suspect]
     Indication: DIABETIC NEUROPATHY
     Dosage: 150 MG/DAY
     Route: 048
     Dates: start: 20090101
  2. DIGOXIN [Concomitant]
     Dosage: UNK,DAILY
     Route: 048
     Dates: start: 19990101
  3. METHIMAZOLE [Concomitant]
     Indication: THYROID DISORDER
     Dosage: UNK,DAILY
     Route: 048
     Dates: start: 19990101
  4. ACETYLSALICYLIC ACID [Concomitant]
     Indication: THROMBOSIS PROPHYLAXIS
     Dosage: UNK,DAILY
     Route: 048
     Dates: start: 19990101
  5. TOPROL-XL [Concomitant]
     Dosage: 100 MG, 1X/DAY
     Route: 048
     Dates: start: 19990101
  6. WARFARIN SODIUM [Concomitant]
     Dosage: 2 MG, 1X/DAY
     Route: 048
     Dates: start: 19990101
  7. FENOFIBRIC ACID [Concomitant]
     Dosage: UNK,DAILY
     Route: 048
     Dates: start: 19990101
  8. LASIX [Concomitant]
     Dosage: UNK,DAILY
     Route: 048
     Dates: start: 19990101
  9. DILTIAZEM [Concomitant]
     Dosage: UNK,DAILY
     Route: 048
     Dates: start: 19990101
  10. POTASSIUM [Concomitant]
     Dosage: UNK,DAILY
     Route: 048
     Dates: start: 19990101

REACTIONS (1)
  - PAIN [None]
